FAERS Safety Report 17938841 (Version 1)
Quarter: 2020Q2

REPORT INFORMATION
  Report Type: Report from Study
  Country: None (occurrence: US)
  Receive Date: 20200625
  Receipt Date: 20200625
  Transmission Date: 20200714
  Serious: Yes (Death)
  Sender: FDA-Public Use
  Company Number: US-ABBVIE-20K-163-3454892-00

PATIENT
  Age: 73 Year
  Sex: Female

DRUGS (1)
  1. HUMIRA [Suspect]
     Active Substance: ADALIMUMAB
     Indication: RHEUMATOID ARTHRITIS
     Dosage: CITRATE FREE
     Route: 058
     Dates: end: 202006

REACTIONS (8)
  - Uterine disorder [Unknown]
  - Cardiac disorder [Unknown]
  - Dyspnoea [Unknown]
  - Lung disorder [Unknown]
  - Muscular weakness [Unknown]
  - Diabetes mellitus [Unknown]
  - Rash erythematous [Unknown]
  - Death [Fatal]

NARRATIVE: CASE EVENT DATE: 20200621
